FAERS Safety Report 9201678 (Version 1)
Quarter: 2013Q2

REPORT INFORMATION
  Report Type: Spontaneous
  Country: JP (occurrence: JP)
  Receive Date: 20130401
  Receipt Date: 20130401
  Transmission Date: 20140414
  Serious: Yes (Other)
  Sender: FDA-Public Use
  Company Number: PHHY2012JP085356

PATIENT
  Sex: Female

DRUGS (8)
  1. NEORAL [Suspect]
     Indication: PUSTULAR PSORIASIS
     Dosage: 100 MG, QD
     Route: 048
  2. NEORAL [Suspect]
     Dosage: 125 MG, QD
     Route: 048
  3. NEORAL [Suspect]
     Dosage: 50 MG, QD
     Route: 048
  4. NEORAL [Suspect]
     Dosage: 100 MG, QD
     Route: 048
  5. TIGASON [Concomitant]
     Indication: PSORIASIS
  6. REMICADE [Concomitant]
     Indication: PSORIATIC ARTHROPATHY
  7. HUMIRA [Concomitant]
     Indication: PSORIATIC ARTHROPATHY
  8. METHOTREXATE [Concomitant]
     Indication: PSORIASIS
     Dosage: 6 MG, QW

REACTIONS (4)
  - Renal impairment [Unknown]
  - Psoriatic arthropathy [Unknown]
  - Rash pustular [Recovered/Resolved]
  - Drug ineffective [Unknown]
